FAERS Safety Report 5254879-4 (Version None)
Quarter: 2007Q1

REPORT INFORMATION
  Report Type: 
  Country: None (occurrence: None)
  Receive Date: 20070305
  Receipt Date: 20070226
  Transmission Date: 20070707
  Serious: Yes (Hospitalization)
  Sender: FDA-Public Use
  Company Number: US-BRISTOL-MYERS SQUIBB COMPANY-13681614

PATIENT
  Age: 28 Year
  Sex: Male

DRUGS (9)
  1. BMS582664 [Suspect]
     Indication: COLORECTAL CANCER
     Route: 048
     Dates: start: 20061227, end: 20070124
  2. ERBITUX [Suspect]
     Indication: COLORECTAL CANCER
  3. DURAGESIC-100 [Concomitant]
     Dates: start: 20070123
  4. COLACE [Concomitant]
     Route: 048
     Dates: start: 20070120
  5. SENOKOT [Concomitant]
     Route: 048
     Dates: start: 20070120
  6. CLINDAMYCIN [Concomitant]
     Route: 048
     Dates: start: 20061122
  7. MINOCYCLINE HCL [Concomitant]
     Route: 048
     Dates: start: 20061122
  8. OXYCODONE HCL [Concomitant]
     Route: 048
     Dates: start: 20070123
  9. COMPAZINE [Concomitant]
     Route: 048
     Dates: start: 20061106

REACTIONS (1)
  - DEEP VEIN THROMBOSIS [None]
